FAERS Safety Report 12484650 (Version 1)
Quarter: 2016Q2

REPORT INFORMATION
  Report Type: Spontaneous
  Country: GB (occurrence: GB)
  Receive Date: 20160621
  Receipt Date: 20160621
  Transmission Date: 20160815
  Serious: Yes (Hospitalization)
  Sender: FDA-Public Use
  Company Number: GB-PFIZER INC-2016299283

PATIENT
  Age: 88 Year
  Sex: Male

DRUGS (13)
  1. HYLO-FORTE [Concomitant]
     Active Substance: HYALURONATE SODIUM
  2. LACRI-LUBE [Concomitant]
  3. AMLODIPINE [Concomitant]
     Active Substance: AMLODIPINE BESYLATE
  4. FINASTERIDE. [Concomitant]
     Active Substance: FINASTERIDE
  5. ASPIRIN (E.C.) [Concomitant]
     Active Substance: ASPIRIN
  6. LAXIDO [Concomitant]
     Active Substance: POLYETHYLENE GLYCOL 3350\POTASSIUM CHLORIDE\SODIUM BICARBONATE\SODIUM CHLORIDE
  7. SINEMET [Concomitant]
     Active Substance: CARBIDOPA\LEVODOPA
  8. PARACETAMOL [Concomitant]
     Active Substance: ACETAMINOPHEN
  9. TOLTERODINE TARTRATE. [Suspect]
     Active Substance: TOLTERODINE TARTRATE
     Indication: URINARY INCONTINENCE
     Dosage: 2 MG, UNK
     Route: 048
     Dates: start: 20160527, end: 20160601
  10. TOLTERODINE TARTRATE. [Suspect]
     Active Substance: TOLTERODINE TARTRATE
     Indication: POLLAKIURIA
  11. TEVA UK TAMSULOSIN MODIFIED RELEASE [Concomitant]
     Active Substance: TAMSULOSIN
  12. NORMACOL [Concomitant]
     Active Substance: KARAYA GUM
  13. RIVASTIGMINE. [Concomitant]
     Active Substance: RIVASTIGMINE

REACTIONS (2)
  - Confusional state [Unknown]
  - Delirium [Not Recovered/Not Resolved]

NARRATIVE: CASE EVENT DATE: 20160529
